FAERS Safety Report 9723390 (Version 1)
Quarter: 2013Q4

REPORT INFORMATION
  Report Type: Spontaneous
  Country: US (occurrence: US)
  Receive Date: 20131202
  Receipt Date: 20131202
  Transmission Date: 20140711
  Serious: Yes (Life-Threatening, Other)
  Sender: FDA-Public Use
  Company Number: US-BRISTOL-MYERS SQUIBB COMPANY-19873785

PATIENT
  Sex: 0

DRUGS (1)
  1. REYATAZ CAPS [Suspect]

REACTIONS (2)
  - Endotracheal intubation [Unknown]
  - Gastrointestinal tube insertion [Unknown]
